FAERS Safety Report 25599438 (Version 1)
Quarter: 2025Q3

REPORT INFORMATION
  Report Type: Spontaneous
  Country: IL (occurrence: IL)
  Receive Date: 20250724
  Receipt Date: 20250724
  Transmission Date: 20251020
  Serious: Yes (Other)
  Sender: NOVO NORDISK
  Company Number: IL-NOVOPROD-1479874

PATIENT
  Age: 31 Year
  Sex: Female

DRUGS (3)
  1. WEGOVY [Suspect]
     Active Substance: SEMAGLUTIDE
     Indication: Product used for unknown indication
     Dates: start: 202409
  2. WEGOVY [Suspect]
     Active Substance: SEMAGLUTIDE
     Dates: end: 202504
  3. WEGOVY [Suspect]
     Active Substance: SEMAGLUTIDE

REACTIONS (2)
  - Cholecystitis [Unknown]
  - Heart rate decreased [Unknown]
